FAERS Safety Report 13883762 (Version 1)
Quarter: 2017Q3

REPORT INFORMATION
  Report Type: Spontaneous
  Country: DE (occurrence: DE)
  Receive Date: 20170819
  Receipt Date: 20170819
  Transmission Date: 20171127
  Serious: Yes (Death, Hospitalization, Other)
  Sender: FDA-Public Use
  Company Number: DE-IPSEN BIOPHARMACEUTICALS, INC.-2017-09237

PATIENT
  Age: 59 Year
  Sex: Male
  Weight: 68 kg

DRUGS (20)
  1. TAMSULOSIN [Concomitant]
     Active Substance: TAMSULOSIN
     Indication: BENIGN PROSTATIC HYPERPLASIA
     Route: 048
     Dates: start: 201009
  2. LX1606 [Concomitant]
     Indication: CARCINOID SYNDROME
     Route: 048
     Dates: start: 20150629, end: 20161214
  3. DICLOFENAC [Concomitant]
     Active Substance: DICLOFENAC
     Indication: ABDOMINAL PAIN
     Route: 048
     Dates: start: 20141021
  4. LX1606 [Concomitant]
     Route: 048
     Dates: start: 20161214, end: 20161215
  5. DOXAZOSIN [Concomitant]
     Active Substance: DOXAZOSIN\DOXAZOSIN MESYLATE
     Indication: HYPERTENSION
     Route: 048
     Dates: start: 20160801
  6. LX1606 [Concomitant]
     Route: 048
     Dates: start: 20161216, end: 20170409
  7. METAMIZOL [Concomitant]
     Active Substance: METAMIZOLE SODIUM
     Indication: ABDOMINAL PAIN
     Route: 048
     Dates: start: 20150408
  8. SYREA [Concomitant]
     Active Substance: HYDROXYUREA
     Indication: ESSENTIAL THROMBOCYTHAEMIA
     Route: 048
     Dates: start: 20160420
  9. NITRIFURANTPOIN [Concomitant]
     Indication: HAEMATURIA
     Route: 048
     Dates: start: 20150825
  10. CANDESARTAN. [Concomitant]
     Active Substance: CANDESARTAN
     Indication: HYPERTENSION
     Route: 048
     Dates: start: 20160324
  11. KONAKION [Concomitant]
     Active Substance: PHYTONADIONE
     Indication: PROPHYLAXIS
     Route: 042
     Dates: start: 20160302, end: 20160306
  12. SOMATULINE [Suspect]
     Active Substance: LANREOTIDE ACETATE
     Indication: NEUROENDOCRINE TUMOUR
     Dosage: 120
     Route: 058
     Dates: start: 201604
  13. ALLOPURINOL. [Concomitant]
     Active Substance: ALLOPURINOL
     Indication: HYPERURICAEMIA
     Route: 048
     Dates: start: 20160330
  14. FENOTEROL [Concomitant]
     Active Substance: FENOTEROL
     Indication: ASTHMA
     Route: 055
     Dates: start: 198508
  15. BUDESOMID [Concomitant]
     Indication: ASTHMA
     Route: 055
     Dates: start: 1998
  16. ACETYLSALICYLACID [Concomitant]
     Indication: PROPHYLAXIS
     Route: 048
     Dates: start: 20141124
  17. LX1606 [Concomitant]
     Route: 048
     Dates: start: 20170411, end: 20170702
  18. METHYLPREDNISOLONE. [Concomitant]
     Active Substance: METHYLPREDNISOLONE
     Indication: ASTHMA
     Dosage: 2-4G
     Route: 048
     Dates: start: 20160330
  19. MONTELUKAST [Concomitant]
     Active Substance: MONTELUKAST SODIUM
     Indication: ASTHMA
     Route: 048
     Dates: start: 2002
  20. TIOTROPIUMBROMID [Concomitant]
     Indication: ASTHMA
     Route: 055
     Dates: start: 1998

REACTIONS (13)
  - Cardiopulmonary failure [Fatal]
  - Atrial fibrillation [Unknown]
  - General physical health deterioration [Recovering/Resolving]
  - Weight increased [Unknown]
  - Oedema [Unknown]
  - Varicose vein [Unknown]
  - Cachexia [Unknown]
  - Metabolic acidosis [Unknown]
  - Pulmonary oedema [Unknown]
  - Cerebral ischaemia [Unknown]
  - Pneumothorax [Unknown]
  - Vitamin D deficiency [Unknown]
  - Oedema peripheral [Unknown]

NARRATIVE: CASE EVENT DATE: 20160408
